FAERS Safety Report 4408793-4 (Version None)
Quarter: 2004Q3

REPORT INFORMATION
  Report Type: 
  Country: None (occurrence: None)
  Receive Date: 20040727
  Receipt Date: 20040513
  Transmission Date: 20050211
  Serious: No
  Sender: FDA-Public Use
  Company Number: US-GLAXOSMITHKLINE-A0510733A

PATIENT
  Age: 62 Year
  Sex: Male

DRUGS (2)
  1. MYLERAN [Suspect]
     Indication: ILL-DEFINED DISORDER
     Route: 048
  2. GLEEVEC [Concomitant]

REACTIONS (2)
  - DRY SKIN [None]
  - PRURITUS [None]
